FAERS Safety Report 14539529 (Version 4)
Quarter: 2018Q2

REPORT INFORMATION
  Report Type: Spontaneous
  Country: JP (occurrence: JP)
  Receive Date: 20180216
  Receipt Date: 20180627
  Transmission Date: 20180711
  Serious: Yes (Death, Hospitalization, Other)
  Sender: FDA-Public Use
  Company Number: PHJP2018JP001509

PATIENT
  Age: 79 Year
  Sex: Male
  Weight: 53 kg

DRUGS (2)
  1. VOTRIENT [Suspect]
     Active Substance: PAZOPANIB HYDROCHLORIDE
     Indication: METASTATIC RENAL CELL CARCINOMA
     Dosage: 600 MG, QD
     Route: 048
     Dates: start: 20171229, end: 20180109
  2. NIVOLUMAB [Suspect]
     Active Substance: NIVOLUMAB
     Indication: METASTASES TO LYMPH NODES
     Dosage: 160 MG, QD
     Route: 041
     Dates: start: 20170501, end: 20171031

REACTIONS (15)
  - Decreased appetite [Fatal]
  - Bronchopulmonary aspergillosis [Fatal]
  - Hepatic failure [Fatal]
  - Alanine aminotransferase increased [Fatal]
  - Pyrexia [Fatal]
  - Blood pressure decreased [Fatal]
  - Prothrombin level decreased [Fatal]
  - Respiratory failure [Fatal]
  - Fatigue [Fatal]
  - Anuria [Fatal]
  - Blood creatine phosphokinase increased [Unknown]
  - Platelet count decreased [Unknown]
  - Oxygen saturation decreased [Fatal]
  - Aspartate aminotransferase increased [Fatal]
  - Shock [Fatal]

NARRATIVE: CASE EVENT DATE: 20180108
